FAERS Safety Report 8175831-5 (Version None)
Quarter: 2012Q1

REPORT INFORMATION
  Report Type: 
  Country: None (occurrence: None)
  Receive Date: 20120228
  Receipt Date: 20120215
  Transmission Date: 20120608
  Serious: Yes (Hospitalization)
  Sender: FDA-Public Use
  Company Number: 2012SP009600

PATIENT
  Age: 67 Year
  Sex: Male

DRUGS (1)
  1. LORATADINE AND PSEUDOEPHEDRINE SULFATE [Suspect]
     Indication: RHINITIS
     Dosage: 10 MG; PO
     Route: 048
     Dates: start: 20120210, end: 20120213

REACTIONS (2)
  - URINARY RETENTION [None]
  - BLADDER PAIN [None]
